FAERS Safety Report 24664180 (Version 1)
Quarter: 2024Q4

REPORT INFORMATION
  Report Type: Spontaneous
  Country: US (occurrence: US)
  Receive Date: 20241126
  Receipt Date: 20241126
  Transmission Date: 20250115
  Serious: No
  Sender: TEVA
  Company Number: US-TEVA-VS-3263396

PATIENT
  Sex: Female

DRUGS (1)
  1. UZEDY [Suspect]
     Active Substance: RISPERIDONE
     Indication: Product used for unknown indication
     Dosage: INJECTABLE SUSPENSION,?100/0.28MG/ML
     Route: 065

REACTIONS (3)
  - Scab [Unknown]
  - Pruritus [Unknown]
  - Adverse drug reaction [Unknown]
